FAERS Safety Report 8117004-8 (Version None)
Quarter: 2012Q1

REPORT INFORMATION
  Report Type: 
  Country: None (occurrence: None)
  Receive Date: 20120206
  Receipt Date: 20120131
  Transmission Date: 20120608
  Serious: Yes (Other)
  Sender: FDA-Public Use
  Company Number: US-ROCHE-786692

PATIENT
  Sex: Female
  Weight: 102.15 kg

DRUGS (2)
  1. ACCUTANE [Suspect]
     Route: 065
     Dates: start: 20000101, end: 20080101
  2. ACCUTANE [Suspect]
     Indication: ACNE
     Route: 065
     Dates: start: 19990101, end: 20030101

REACTIONS (9)
  - OESOPHAGITIS [None]
  - COLITIS ULCERATIVE [None]
  - SUICIDAL IDEATION [None]
  - VISION BLURRED [None]
  - GASTRITIS [None]
  - INFLAMMATORY BOWEL DISEASE [None]
  - IRRITABLE BOWEL SYNDROME [None]
  - DEPRESSION [None]
  - HEADACHE [None]
